FAERS Safety Report 5367053-8 (Version None)
Quarter: 2007Q2

REPORT INFORMATION
  Report Type: 
  Country: None (occurrence: None)
  Receive Date: 20070622
  Receipt Date: 20070619
  Transmission Date: 20071010
  Serious: Yes (Life-Threatening, Hospitalization)
  Sender: FDA-Public Use
  Company Number: B0470798A

PATIENT
  Age: 43 Year
  Sex: Female

DRUGS (4)
  1. PAXIL [Suspect]
     Indication: DEPRESSION
     Dosage: 20MG PER DAY
     Route: 048
     Dates: start: 20050815, end: 20060129
  2. MEILAX [Concomitant]
     Indication: DEPRESSION
     Dosage: 1MG SEE DOSAGE TEXT
     Route: 048
     Dates: start: 20050815, end: 20060129
  3. DEPAS [Concomitant]
     Route: 048
  4. BENZODIAZEPINE ANTIDOTE [Concomitant]
     Indication: DEPRESSION
     Route: 065

REACTIONS (10)
  - ALTERED STATE OF CONSCIOUSNESS [None]
  - CONVULSION [None]
  - DEPRESSED LEVEL OF CONSCIOUSNESS [None]
  - DYSARTHRIA [None]
  - HYPERREFLEXIA [None]
  - MYOCLONUS [None]
  - PYREXIA [None]
  - RESPIRATORY DISORDER [None]
  - RESTLESSNESS [None]
  - SEROTONIN SYNDROME [None]
